FAERS Safety Report 7230503-6 (Version None)
Quarter: 2011Q1

REPORT INFORMATION
  Report Type: 
  Country: None (occurrence: None)
  Receive Date: 20110118
  Receipt Date: 20110105
  Transmission Date: 20110831
  Serious: Yes (Other)
  Sender: FDA-Public Use
  Company Number: PHHY2009FR50901

PATIENT
  Age: 65 Year
  Sex: Female

DRUGS (1)
  1. ACLASTA [Suspect]
     Indication: OSTEOPOROSIS
     Dosage: 5 MG, UNK
     Dates: start: 20091104

REACTIONS (14)
  - HEADACHE [None]
  - BONE PAIN [None]
  - PYREXIA [None]
  - VOMITING [None]
  - EYE PAIN [None]
  - IMPLANT SITE PAIN [None]
  - PAIN IN EXTREMITY [None]
  - TORTICOLLIS [None]
  - CHILLS [None]
  - OSTEOARTHRITIS [None]
  - BACK PAIN [None]
  - FATIGUE [None]
  - NAUSEA [None]
  - DIARRHOEA [None]
